FAERS Safety Report 8942245 (Version 1)
Quarter: 2012Q4

REPORT INFORMATION
  Report Type: Spontaneous
  Country: US (occurrence: None)
  Receive Date: 20121129
  Receipt Date: 20121129
  Transmission Date: 20130627
  Serious: Yes (Life-Threatening, Hospitalization)
  Sender: FDA-Public Use
  Company Number: None

PATIENT
  Age: 58 Year
  Sex: Female
  Weight: 103 kg

DRUGS (1)
  1. BENZOCAINE [Suspect]
     Indication: ANESTHESIA
     Dosage: unknown one-time oral
     Route: 048
     Dates: start: 20121005

REACTIONS (2)
  - Methaemoglobinaemia [None]
  - General physical health deterioration [None]
